FAERS Safety Report 9277853 (Version 1)
Quarter: 2013Q2

REPORT INFORMATION
  Report Type: Spontaneous
  Country: US (occurrence: None)
  Receive Date: 20130503
  Receipt Date: 20130503
  Transmission Date: 20140414
  Serious: Yes (Hospitalization)
  Sender: FDA-Public Use
  Company Number: None

PATIENT
  Age: 69 Year
  Sex: Female
  Weight: 104.3 kg

DRUGS (1)
  1. ZYVOX [Suspect]

REACTIONS (4)
  - Mobility decreased [None]
  - Mental status changes [None]
  - Confusional state [None]
  - Disorientation [None]
